FAERS Safety Report 25902120 (Version 1)
Quarter: 2025Q4

REPORT INFORMATION
  Report Type: Spontaneous
  Country: US (occurrence: None)
  Receive Date: 20251009
  Receipt Date: 20251009
  Transmission Date: 20260118
  Serious: Yes (Hospitalization)
  Sender: FDA-CTU
  Company Number: None

PATIENT
  Age: 32 Year
  Sex: Male

DRUGS (1)
  1. STELARA [Suspect]
     Active Substance: USTEKINUMAB
     Dosage: 90MG Q8W SUBCUTNEOUS?
     Route: 058

REACTIONS (6)
  - Drug ineffective [None]
  - Rash [None]
  - Crohn^s disease [None]
  - Dry skin [None]
  - Rash [None]
  - Therapy change [None]
